FAERS Safety Report 6501371-2 (Version None)
Quarter: 2009Q4

REPORT INFORMATION
  Report Type: 
  Country: None (occurrence: None)
  Receive Date: 20091215
  Receipt Date: 20091215
  Transmission Date: 20100525
  Serious: Yes (Life-Threatening, Hospitalization)
  Sender: FDA-Public Use
  Company Number: None

PATIENT
  Age: 17 Year
  Sex: Female
  Weight: 54.4316 kg

DRUGS (4)
  1. LAMICTAL [Suspect]
     Indication: BIPOLAR DISORDER
     Dosage: 25 MG 2 WEEKS/50 MG 3 DAYS OD PO
     Route: 048
     Dates: start: 20091123, end: 20091209
  2. LAMICTAL [Suspect]
     Indication: DEPRESSION
     Dosage: 25 MG 2 WEEKS/50 MG 3 DAYS OD PO
     Route: 048
     Dates: start: 20091123, end: 20091209
  3. ABILIFY [Suspect]
     Indication: BIPOLAR DISORDER
     Dosage: 5 MG/10 MG/15 MG OD PO
     Route: 048
     Dates: start: 20091023, end: 20091211
  4. ABILIFY [Suspect]
     Indication: DEPRESSION
     Dosage: 5 MG/10 MG/15 MG OD PO
     Route: 048
     Dates: start: 20091023, end: 20091211

REACTIONS (5)
  - HEADACHE [None]
  - INFLUENZA [None]
  - OROPHARYNGEAL PAIN [None]
  - PYREXIA [None]
  - STEVENS-JOHNSON SYNDROME [None]
